FAERS Safety Report 4957025-7 (Version None)
Quarter: 2006Q1

REPORT INFORMATION
  Report Type: 
  Country: None (occurrence: None)
  Receive Date: 20060127
  Receipt Date: 20050819
  Transmission Date: 20060701
  Serious: Yes (Other)
  Sender: FDA-Public Use
  Company Number: 05-08-1464

PATIENT
  Age: 16 Year
  Sex: Male

DRUGS (1)
  1. CLOZAPINE [Suspect]
     Dosage: 25 MG, BID, ORAL
     Route: 048
     Dates: start: 20050617, end: 20050729

REACTIONS (2)
  - CONVULSION [None]
  - GRANULOCYTOSIS [None]
